FAERS Safety Report 23906953 (Version 2)
Quarter: 2024Q2

REPORT INFORMATION
  Report Type: Spontaneous
  Country: US (occurrence: US)
  Receive Date: 20240528
  Receipt Date: 20240529
  Transmission Date: 20240715
  Serious: No
  Sender: FDA-Public Use
  Company Number: US-002147023-NVSC2024US111665

PATIENT

DRUGS (1)
  1. LEQVIO [Suspect]
     Active Substance: INCLISIRAN SODIUM
     Indication: Product used for unknown indication
     Dosage: 284 MG (VIAL)
     Route: 058
     Dates: start: 20240308, end: 20240308

REACTIONS (3)
  - Madarosis [Unknown]
  - Pruritus [Unknown]
  - Dry skin [Unknown]
